FAERS Safety Report 8333153-3 (Version None)
Quarter: 2012Q2

REPORT INFORMATION
  Report Type: 
  Country: None (occurrence: None)
  Receive Date: 20120503
  Receipt Date: 20120427
  Transmission Date: 20120825
  Serious: Yes (Hospitalization, Other)
  Sender: FDA-Public Use
  Company Number: FR-PFIZER INC-2012104351

PATIENT
  Age: 68 Year
  Sex: Male

DRUGS (6)
  1. AMLODIPINE BESYLATE [Concomitant]
     Dosage: 10 MG
  2. ASPIRIN [Concomitant]
     Dosage: 75 MG
  3. MODOPAR [Concomitant]
     Dosage: UNK
  4. IBUPROFEN + PSEUDOEPHEDRINE HCL [Suspect]
     Dosage: UNK FOR 24 HOURS
     Route: 048
     Dates: start: 20120201, end: 20120201
  5. PERMIXON [Concomitant]
     Dosage: UNK
  6. PREDNISOLONE [Suspect]
     Dosage: 20 MG, TWO DOSE FORMS PER DAY
     Route: 048
     Dates: start: 20120201

REACTIONS (4)
  - PNEUMONIA [None]
  - RESPIRATORY ACIDOSIS [None]
  - RESPIRATORY DISTRESS [None]
  - LUNG DISORDER [None]
